FAERS Safety Report 7212356-5 (Version None)
Quarter: 2011Q1

REPORT INFORMATION
  Report Type: 
  Country: None (occurrence: None)
  Receive Date: 20110106
  Receipt Date: 20101227
  Transmission Date: 20110831
  Serious: Yes (Life-Threatening, Hospitalization)
  Sender: FDA-Public Use
  Company Number: FR-BRISTOL-MYERS SQUIBB COMPANY-15470511

PATIENT
  Age: 29 Year
  Sex: Female

DRUGS (7)
  1. TAHOR [Concomitant]
  2. GLUCOPHAGE [Suspect]
     Indication: TYPE 2 DIABETES MELLITUS
     Route: 048
  3. CELLCEPT [Concomitant]
  4. PROGRAF [Concomitant]
  5. GLUCOVANCE [Suspect]
     Indication: TYPE 2 DIABETES MELLITUS
     Dosage: 1 DF = 5/500MG TABLETS
     Route: 048
  6. LANTUS [Concomitant]
  7. CACIT D3 [Concomitant]

REACTIONS (4)
  - HYPOGLYCAEMIA [None]
  - LACTIC ACIDOSIS [None]
  - RENAL FAILURE [None]
  - HYPERGLYCAEMIA [None]
